FAERS Safety Report 12190965 (Version 1)
Quarter: 2016Q1

REPORT INFORMATION
  Report Type: Spontaneous
  Country: TW (occurrence: TW)
  Receive Date: 20160318
  Receipt Date: 20160318
  Transmission Date: 20160526
  Serious: Yes (Hospitalization)
  Sender: FDA-Public Use
  Company Number: TW-SA-2016SA051059

PATIENT
  Age: 8 Year
  Sex: Male
  Weight: 25.8 kg

DRUGS (1)
  1. MYOZYME [Suspect]
     Active Substance: ALGLUCOSIDASE ALFA
     Indication: GLYCOGEN STORAGE DISEASE TYPE II
     Route: 041
     Dates: start: 20071205

REACTIONS (7)
  - Oxygen saturation decreased [Unknown]
  - Heart rate increased [Unknown]
  - Pyrexia [Unknown]
  - C-reactive protein increased [Unknown]
  - Sputum increased [Unknown]
  - Decreased appetite [Unknown]
  - Leukocytosis [Unknown]

NARRATIVE: CASE EVENT DATE: 20160225
